FAERS Safety Report 9036870 (Version 1)
Quarter: 2013Q1

REPORT INFORMATION
  Report Type: Spontaneous
  Country: US (occurrence: None)
  Receive Date: 20130123
  Receipt Date: 20130123
  Transmission Date: 20140127
  Serious: Yes (Hospitalization, Other)
  Sender: FDA-Public Use
  Company Number: None

PATIENT
  Age: 39 Year
  Sex: Female
  Weight: 62.6 kg

DRUGS (1)
  1. SUBUTEX [Suspect]
     Indication: PAIN MANAGEMENT
     Route: 060
     Dates: start: 20040801, end: 20131211

REACTIONS (4)
  - Drug withdrawal syndrome [None]
  - Impaired work ability [None]
  - Depression [None]
  - Anxiety [None]
